FAERS Safety Report 8760752 (Version 3)
Quarter: 2012Q4

REPORT INFORMATION
  Report Type: Report from Study
  Country: US (occurrence: US)
  Receive Date: 20120830
  Receipt Date: 20120904
  Transmission Date: 20130627
  Serious: Yes (Hospitalization)
  Sender: FDA-Public Use
  Company Number: US-MERCK-1208USA009877

PATIENT

DRUGS (18)
  1. PEGINTRON [Suspect]
     Indication: HEPATITIS C
     Dosage: 0.5 ml, qw
     Route: 048
     Dates: start: 20120110, end: 20120619
  2. BOCEPREVIR\PLACEBO [Suspect]
     Indication: HEPATITIS C
     Dosage: A
     Route: 048
     Dates: start: 20120111, end: 20120404
  3. UNSPECIFIED INGREDIENT [Suspect]
     Indication: HEPATITIS C
     Dosage: A
     Route: 048
     Dates: start: 20120111, end: 20120404
  4. PEGINTERFERON ALFA-2B [Suspect]
     Indication: HEPATITIS C
     Dosage: A
     Route: 048
     Dates: start: 20120111, end: 20120404
  5. BLINDED PLACEBO [Suspect]
     Indication: HEPATITIS C
     Dosage: A
     Route: 048
     Dates: start: 20120111, end: 20120404
  6. UNSPECIFIED INGREDIENT [Suspect]
     Indication: HEPATITIS C
     Dosage: A
     Route: 048
     Dates: start: 20120111, end: 20120404
  7. UNSPECIFIED INGREDIENT [Suspect]
     Indication: HEPATITIS C
     Dosage: A
     Route: 048
     Dates: start: 20120111, end: 20120404
  8. RIBAVIRIN [Suspect]
     Indication: HEPATITIS C
     Dosage: A
     Route: 048
     Dates: start: 20120111, end: 20120404
  9. REBETOL [Suspect]
     Indication: HEPATITIS C
     Dosage: 3 DF, qam
     Route: 048
     Dates: start: 20120111, end: 20120410
  10. REBETOL [Suspect]
     Dosage: 3 DF, qpm
     Route: 048
     Dates: start: 20120111, end: 20120406
  11. REBETOL [Suspect]
     Dosage: 2 DF, qpm
     Route: 048
     Dates: start: 20120407, end: 20120624
  12. REBETOL [Suspect]
     Dosage: 2 DF, qam
     Route: 048
     Dates: start: 20120411, end: 20120416
  13. REBETOL [Suspect]
     Dosage: 3 DF, qam
     Route: 048
     Dates: start: 20120417, end: 20120430
  14. REBETOL [Suspect]
     Dosage: 2 DF, qam
     Route: 048
     Dates: start: 20120501, end: 20120624
  15. UNSPECIFIED INGREDIENT [Suspect]
     Indication: HEPATITIS C
     Dosage: 4 DF, tid
     Route: 048
     Dates: start: 20120208, end: 20120624
  16. PROTONIX [Concomitant]
     Indication: GASTROOESOPHAGEAL REFLUX DISEASE
     Dosage: 20 mg, qd
     Route: 048
     Dates: start: 20120425
  17. LISINOPRIL [Concomitant]
     Indication: HYPERTENSION
     Dosage: 40 mg, qd
     Route: 048
     Dates: start: 20120211
  18. PAXIL [Concomitant]
     Indication: DEPRESSION
     Dosage: 40 mg, qd
     Route: 048
     Dates: start: 20120322

REACTIONS (7)
  - Bronchiolitis [Recovered/Resolved]
  - Diarrhoea [None]
  - Hypophagia [None]
  - Hallucination [None]
  - Haemolytic anaemia [None]
  - Renal failure acute [None]
  - Metabolic acidosis [None]
